FAERS Safety Report 8216048-5 (Version None)
Quarter: 2012Q1

REPORT INFORMATION
  Report Type: 
  Country: None (occurrence: None)
  Receive Date: 20120316
  Receipt Date: 20120307
  Transmission Date: 20120608
  Serious: Yes (Other)
  Sender: FDA-Public Use
  Company Number: US-BAYER-2012-023584

PATIENT
  Age: 19 Year
  Sex: Female
  Weight: 81.633 kg

DRUGS (4)
  1. YASMIN [Suspect]
  2. FIORINAL W/CODEINE [Concomitant]
  3. BACTRIM [Concomitant]
  4. DROSPIRENONE AND ETHINYL ESTRADIOL [Suspect]

REACTIONS (3)
  - SUPERIOR SAGITTAL SINUS THROMBOSIS [None]
  - TRANSVERSE SINUS THROMBOSIS [None]
  - JUGULAR VEIN THROMBOSIS [None]
